FAERS Safety Report 12295737 (Version 1)
Quarter: 2016Q2

REPORT INFORMATION
  Report Type: Spontaneous
  Country: US (occurrence: US)
  Receive Date: 20160422
  Receipt Date: 20160422
  Transmission Date: 20160815
  Serious: Yes (Hospitalization)
  Sender: FDA-Public Use
  Company Number: US-FRESENIUS KABI-FK201601959

PATIENT
  Age: 35 Year
  Sex: Female

DRUGS (2)
  1. FUROSEMIDE (MANUFACTURER UNKNOWN) [Suspect]
     Active Substance: FUROSEMIDE
     Indication: PRODUCT USED FOR UNKNOWN INDICATION
     Route: 065
  2. PREDNISONE. [Suspect]
     Active Substance: PREDNISONE
     Indication: PRODUCT USED FOR UNKNOWN INDICATION
     Route: 065

REACTIONS (3)
  - Hypokalaemia [Unknown]
  - Supraventricular extrasystoles [Unknown]
  - Supraventricular tachycardia [Unknown]
